FAERS Safety Report 10246707 (Version 1)
Quarter: 2014Q1

REPORT INFORMATION
  Report Type: Spontaneous
  Country: US (occurrence: None)
  Receive Date: 20140306
  Receipt Date: 20140306
  Transmission Date: 20141002
  Serious: Yes (Hospitalization)
  Sender: FDA-Public Use
  Company Number: 163-21880-13042818

PATIENT
  Age: 82 Year
  Sex: Male
  Weight: 66.68 kg

DRUGS (19)
  1. REVLIMID [Suspect]
     Indication: PLASMA CELL MYELOMA
     Dosage: 10 MG, 21 IN 28 D, PO
     Route: 048
     Dates: start: 20130211
  2. MLN9708 VS. PLACEBO [Suspect]
     Indication: PLASMA CELL MYELOMA
     Dosage: 4 MG , 3 IN 28 D, PO
     Route: 048
     Dates: start: 20130211, end: 20130408
  3. DEXAMETHASONE (DEXAMETHASONE) (UNKNOWN) [Suspect]
     Indication: PLASMA CELL MYELOMA
     Dosage: 20 MG, 4 IN 28 D, PO
     Route: 048
     Dates: start: 20130211, end: 20130408
  4. HYDROCODONE-ACETAMINOPHEN (VICODIN) [Concomitant]
  5. ASPIRIN (ACETAMINOPHEN ACID) [Concomitant]
  6. LOVENOX (HEPARIN-FRACTION, SODIUM SALT) [Concomitant]
  7. PLAVIX (CLOPIDOGREL SULFATE) [Concomitant]
  8. SIMVASTATIN [Concomitant]
  9. ADVAIR DISKUS [Concomitant]
  10. CENTRUM SILVER [Concomitant]
  11. LEVITRA  (VARDENAFIL HYDROCHLORIDE) [Concomitant]
  12. PROVENTIL (SALBUTAMOL) [Concomitant]
  13. TYLENOL (PARACETAMOL) [Concomitant]
  14. ATENOLOL [Concomitant]
  15. LISINOPRIL [Concomitant]
  16. METFORMIN [Concomitant]
  17. OMEPRAZOLE [Concomitant]
  18. VICODIN [Concomitant]
  19. ASCORBIC ACID / CALCIUM (ASCORBIC ACID) [Concomitant]

REACTIONS (1)
  - Acute myocardial infarction [None]
